FAERS Safety Report 9419115 (Version 1)
Quarter: 2013Q3

REPORT INFORMATION
  Report Type: Spontaneous
  Country: FR (occurrence: FR)
  Receive Date: 20130725
  Receipt Date: 20130725
  Transmission Date: 20140515
  Serious: Yes (Hospitalization)
  Sender: FDA-Public Use
  Company Number: FR-NOVOPROD-383411

PATIENT
  Age: 73 Year
  Sex: Female

DRUGS (7)
  1. NOVOMIX 30 [Suspect]
     Indication: DIABETES MELLITUS
     Route: 058
  2. ALDACTONE /00006201/ [Suspect]
     Dosage: 5 MG, QD
     Route: 048
     Dates: start: 201302
  3. SEROPLEX [Suspect]
     Dosage: 5 MG, QD
     Route: 048
     Dates: start: 20130428, end: 201306
  4. URSOLVAN-200 [Suspect]
     Dosage: 200 MG, QD
     Route: 048
     Dates: start: 20130428
  5. DOLIPRANE [Suspect]
     Dosage: 2 G, QD
     Route: 048
     Dates: start: 20130428
  6. PREVISCAN                          /00261401/ [Concomitant]
     Dosage: UNK
     Route: 065
     Dates: start: 20130113
  7. INNOHEP [Concomitant]
     Dosage: UNK
     Route: 065

REACTIONS (1)
  - Agranulocytosis [Recovered/Resolved]
